FAERS Safety Report 5337125-2 (Version None)
Quarter: 2007Q2

REPORT INFORMATION
  Report Type: 
  Country: None (occurrence: None)
  Receive Date: 20070529
  Receipt Date: 20070521
  Transmission Date: 20071010
  Serious: Yes (Death)
  Sender: FDA-Public Use
  Company Number: NZ-ASTRAZENECA-2007AP02725

PATIENT
  Age: 18629 Day
  Sex: Female
  Weight: 70 kg

DRUGS (4)
  1. SEROQUEL [Suspect]
     Indication: SCHIZOAFFECTIVE DISORDER
     Route: 048
     Dates: start: 20050106
  2. SEROQUEL [Suspect]
     Route: 048
     Dates: start: 20050106
  3. PAROXETINE [Concomitant]
     Indication: ANTIDEPRESSANT THERAPY
     Dates: start: 20050408
  4. NITRAZEPAM [Concomitant]
     Dates: start: 20051215

REACTIONS (1)
  - OVERDOSE [None]
